FAERS Safety Report 23312371 (Version 2)
Quarter: 2024Q2

REPORT INFORMATION
  Report Type: Report from Study
  Country: FR (occurrence: FR)
  Receive Date: 20231219
  Receipt Date: 20240513
  Transmission Date: 20240715
  Serious: Yes (Hospitalization, Other)
  Sender: FDA-Public Use
  Company Number: None

PATIENT

DRUGS (4)
  1. DOSTARLIMAB [Suspect]
     Active Substance: DOSTARLIMAB
     Indication: Neoplasm
     Dosage: 50 MG/ML
     Route: 042
     Dates: start: 20230721, end: 20231012
  2. DOSTARLIMAB [Suspect]
     Active Substance: DOSTARLIMAB
     Indication: Endometrial cancer
  3. CARBOPLATIN [Suspect]
     Active Substance: CARBOPLATIN
     Indication: Endometrial cancer
     Dosage: UNK,DOSAGE NOT REPORTED
     Route: 042
     Dates: start: 20230721, end: 20231012
  4. PACLITAXEL [Suspect]
     Active Substance: PACLITAXEL
     Indication: Endometrial cancer
     Dosage: UNK,DOSAGE NOT REPORTED
     Route: 042
     Dates: start: 20230721, end: 20231012

REACTIONS (1)
  - Autoimmune haemolytic anaemia [Recovering/Resolving]

NARRATIVE: CASE EVENT DATE: 20231027
